FAERS Safety Report 4542466-2 (Version None)
Quarter: 2004Q4

REPORT INFORMATION
  Report Type: 
  Country: None (occurrence: None)
  Receive Date: 20041227
  Receipt Date: 20041214
  Transmission Date: 20050328
  Serious: Yes (Other)
  Sender: FDA-Public Use
  Company Number: 2004115003

PATIENT
  Age: 50 Year
  Sex: Female
  Weight: 55.3388 kg

DRUGS (2)
  1. CLINDAMYCIN HYDROCHLORIDE [Suspect]
     Indication: ENDODONTIC PROCEDURE
     Dosage: ORAL
     Route: 048
     Dates: start: 20041001, end: 20041001
  2. IRON (IRON) [Concomitant]

REACTIONS (6)
  - BURNING SENSATION [None]
  - DIARRHOEA [None]
  - DRUG RESISTANCE [None]
  - LIP PAIN [None]
  - LIP SLOUGHING [None]
  - POST PROCEDURAL COMPLICATION [None]
